FAERS Safety Report 4941182-2 (Version None)
Quarter: 2006Q1

REPORT INFORMATION
  Report Type: 
  Country: None (occurrence: None)
  Receive Date: 20060308
  Receipt Date: 20060228
  Transmission Date: 20060701
  Serious: Yes (Other)
  Sender: FDA-Public Use
  Company Number: 2006030014

PATIENT
  Age: 31 Year
  Sex: Female

DRUGS (4)
  1. ALPRAZOLAM [Suspect]
     Indication: TINNITUS
     Dosage: 2 MG
     Dates: start: 20040101
  2. ALL OTHER THERAPEUTIC PRODUCTS [Concomitant]
  3. AMBIEN [Concomitant]
  4. LUNESTA [Concomitant]

REACTIONS (10)
  - ABNORMAL BEHAVIOUR [None]
  - AMNESIA [None]
  - DECREASED APPETITE [None]
  - DRUG DEPENDENCE [None]
  - DRUG EFFECT DECREASED [None]
  - MUSCLE TWITCHING [None]
  - PITUITARY TUMOUR [None]
  - SELF-MEDICATION [None]
  - TREATMENT NONCOMPLIANCE [None]
  - WEIGHT DECREASED [None]
